FAERS Safety Report 6599254-5 (Version None)
Quarter: 2010Q1

REPORT INFORMATION
  Report Type: 
  Country: None (occurrence: None)
  Receive Date: 20100224
  Receipt Date: 20100217
  Transmission Date: 20100710
  Serious: Yes (Death, Other)
  Sender: FDA-Public Use
  Company Number: PHHY2010JP09622

PATIENT
  Age: 48 Year
  Sex: Male

DRUGS (6)
  1. CYCLOSPORINE [Suspect]
     Indication: RENAL TRANSPLANT
  2. PREDNISOLONE [Suspect]
     Indication: RENAL TRANSPLANT
  3. MIZORIBINE [Concomitant]
     Indication: RENAL TRANSPLANT
  4. ANTILYMPHOCYTE IMMUNOGLOBULIN (HORSE) [Concomitant]
     Indication: RENAL TRANSPLANT
  5. METHYLPREDNISOLONE 4MG TAB [Concomitant]
  6. ORTHOCLONE [Concomitant]

REACTIONS (3)
  - EPSTEIN-BARR VIRUS ASSOCIATED LYMPHOPROLIFERATIVE DISORDER [None]
  - KIDNEY TRANSPLANT REJECTION [None]
  - LYMPHOMA [None]
